FAERS Safety Report 10507464 (Version 2)
Quarter: 2014Q4

REPORT INFORMATION
  Report Type: Report from Study
  Country: BR (occurrence: BR)
  Receive Date: 20141009
  Receipt Date: 20141030
  Transmission Date: 20150528
  Serious: Yes (Death, Life-Threatening)
  Sender: FDA-Public Use
  Company Number: BR-B.I. PHARMACEUTICALS,INC./RIDGEFIELD-2014-BI-47909BR

PATIENT
  Age: 75 Year
  Sex: Male

DRUGS (4)
  1. AAS [Concomitant]
     Active Substance: ASPIRIN
     Indication: BLOOD DISORDER
     Dosage: 1 ANZ
     Route: 048
     Dates: end: 20141004
  2. OTHER MEDICATION FOR HIGH (BLOOD) PRESSURE [Concomitant]
     Indication: HYPERTENSION
     Dosage: 1 ANZ
     Route: 048
  3. ENALAPRIL [Concomitant]
     Active Substance: ENALAPRIL
     Indication: HYPERTENSION
     Dosage: 2 ANZ
     Route: 048
     Dates: end: 20141004
  4. PRADAXA [Suspect]
     Active Substance: DABIGATRAN ETEXILATE MESYLATE
     Indication: ARRHYTHMIA
     Dosage: 2 ANZ
     Route: 048
     Dates: start: 20140918, end: 20141004

REACTIONS (3)
  - Hypotension [Recovered/Resolved]
  - Dyspnoea [Not Recovered/Not Resolved]
  - Infarction [Fatal]

NARRATIVE: CASE EVENT DATE: 20141003
